FAERS Safety Report 8563913 (Version 4)
Quarter: 2012Q4

REPORT INFORMATION
  Report Type: Report from Study
  Country: DE (occurrence: FR)
  Receive Date: 20120516
  Receipt Date: 20121003
  Transmission Date: 20130627
  Serious: Yes (Hospitalization)
  Sender: FDA-Public Use
  Company Number: FR-BRISTOL-MYERS SQUIBB COMPANY-16587339

PATIENT
  Age: 58 Year
  Sex: Male

DRUGS (17)
  1. CETUXIMAB [Suspect]
     Indication: HEAD AND NECK CANCER
     Dosage: X1 cycle
     Route: 042
     Dates: start: 20101102, end: 20101220
  2. CISPLATIN [Suspect]
     Indication: HEAD AND NECK CANCER
     Dosage: First day of 21 day cycle
     Route: 042
     Dates: start: 20100825, end: 20101007
  3. DOCETAXEL [Suspect]
     Indication: HEAD AND NECK CANCER
     Dosage: First day of 21 day cycle
     Route: 042
     Dates: start: 20100825, end: 20101007
  4. 5-FLUOROURACIL [Suspect]
     Indication: HEAD AND NECK CANCER
     Dosage: First 5 days of 21 day cycle.
     Route: 042
     Dates: start: 20100825, end: 20101011
  5. SKENAN [Concomitant]
     Indication: DYSPHAGIA
     Dosage: 1df=8 units NOS
     Dates: start: 20110201, end: 20110219
  6. SKENAN [Concomitant]
     Indication: PAIN
     Dosage: 1df=8 units NOS
     Dates: start: 20110201, end: 20110219
  7. SKENAN [Concomitant]
     Indication: MUCOSAL INFLAMMATION
     Dosage: 1df=8 units NOS
     Dates: start: 20110201, end: 20110219
  8. ALPRAZOLAM [Concomitant]
     Route: 048
  9. INIPOMP [Concomitant]
     Route: 048
  10. SERESTA [Concomitant]
     Route: 048
  11. SULFARLEM [Concomitant]
     Dosage: 105mg
     Route: 048
  12. TERCIAN [Concomitant]
     Route: 048
  13. DAFALGAN [Concomitant]
     Indication: MUCOSAL INFLAMMATION
  14. DAFALGAN [Concomitant]
     Indication: DYSPHAGIA
  15. DAFALGAN [Concomitant]
     Indication: PAIN
  16. ACTISKENAN [Concomitant]
     Indication: PAIN
     Dosage: 1df=10 units NOS
     Route: 048
  17. DIFFU-K [Concomitant]
     Indication: HYPOKALAEMIA

REACTIONS (4)
  - Mucosal inflammation [Recovered/Resolved]
  - Dysphagia [Recovered/Resolved]
  - Diarrhoea [Recovered/Resolved]
  - Device related infection [Recovered/Resolved]
